FAERS Safety Report 13068006 (Version 1)
Quarter: 2016Q4

REPORT INFORMATION
  Report Type: Report from Study
  Country: QA (occurrence: QA)
  Receive Date: 20161228
  Receipt Date: 20161228
  Transmission Date: 20170207
  Serious: Yes (Other)
  Sender: FDA-Public Use
  Company Number: QA-ROCHE-1872153

PATIENT

DRUGS (4)
  1. TACROLIMUS. [Interacting]
     Active Substance: TACROLIMUS
     Indication: HEPATITIS C
     Route: 065
  2. OMBITASVIR/PARITAPREVIR/RITONAVIR [Interacting]
     Active Substance: OMBITASVIR\PARITAPREVIR\RITONAVIR
     Indication: HEPATITIS C
     Route: 065
  3. CYCLOSPORINE. [Concomitant]
     Active Substance: CYCLOSPORINE
  4. RIBAVIRIN. [Suspect]
     Active Substance: RIBAVIRIN
     Indication: HEPATITIS C
     Route: 065

REACTIONS (3)
  - Drug interaction [Unknown]
  - Hepatocellular carcinoma [Unknown]
  - Transaminases increased [Unknown]
